FAERS Safety Report 4861082-6 (Version None)
Quarter: 2005Q4

REPORT INFORMATION
  Report Type: 
  Country: None (occurrence: None)
  Receive Date: 20051220
  Receipt Date: 20041203
  Transmission Date: 20060501
  Serious: Yes (Other)
  Sender: FDA-Public Use
  Company Number: GB-GLAXOSMITHKLINE-B0360740A

PATIENT
  Sex: Male

DRUGS (9)
  1. PAROXETINE HYDROCHLORIDE [Suspect]
     Route: 065
     Dates: start: 19951206
  2. QUETIAPINE FUMARATE [Suspect]
     Route: 065
  3. CELECOXIB [Suspect]
     Route: 065
  4. PARACETAMOL [Suspect]
     Route: 065
  5. RANITIDINE [Concomitant]
     Route: 065
  6. PAINKILLER [Concomitant]
     Route: 065
  7. PROCYCLIDINE [Concomitant]
     Route: 065
  8. DIAZEPAM [Concomitant]
     Route: 065
  9. AMISULPRIDE [Concomitant]
     Route: 065

REACTIONS (6)
  - AGGRESSION [None]
  - ANGER [None]
  - DRUG INEFFECTIVE [None]
  - DRUG WITHDRAWAL SYNDROME [None]
  - MENTAL STATUS CHANGES [None]
  - OVERDOSE [None]
